FAERS Safety Report 15093374 (Version 1)
Quarter: 2018Q2

REPORT INFORMATION
  Report Type: Spontaneous
  Country: US (occurrence: US)
  Receive Date: 20180629
  Receipt Date: 20180629
  Transmission Date: 20180711
  Serious: Yes (Hospitalization)
  Sender: FDA-Public Use
  Company Number: US-ENDO PHARMACEUTICALS INC-2018-039850

PATIENT
  Sex: Female

DRUGS (2)
  1. PREDNISONE TABLETS 20MG [Suspect]
     Active Substance: PREDNISONE
     Indication: OFF LABEL USE
     Dosage: 20 UNKNOWN, DAILY
     Route: 065
     Dates: start: 2012, end: 2014
  2. PREDNISONE TABLETS 20MG [Suspect]
     Active Substance: PREDNISONE
     Indication: OFF LABEL USE
     Dosage: 80 UNKNOWN, DAILY
     Route: 065
     Dates: start: 2012, end: 2014

REACTIONS (4)
  - Osteomyelitis [Not Recovered/Not Resolved]
  - Musculoskeletal discomfort [Not Recovered/Not Resolved]
  - Off label use [Unknown]
  - Spinal osteoarthritis [Not Recovered/Not Resolved]

NARRATIVE: CASE EVENT DATE: 2012
